FAERS Safety Report 19515042 (Version 2)
Quarter: 2021Q3

REPORT INFORMATION
  Report Type: Report from Study
  Country: US (occurrence: US)
  Receive Date: 20210710
  Receipt Date: 20210908
  Transmission Date: 20211014
  Serious: Yes (Other)
  Sender: FDA-Public Use
  Company Number: NVSC2021US150913

PATIENT
  Sex: Female

DRUGS (1)
  1. COSENTYX [Suspect]
     Active Substance: SECUKINUMAB
     Indication: ANKYLOSING SPONDYLITIS
     Dosage: 150 MG, OTHER (EVERY 28 DAYS, BENEATH THE SKIN, USUALLY VIA INJECTION)
     Route: 058

REACTIONS (1)
  - Ankylosing spondylitis [Not Recovered/Not Resolved]
